FAERS Safety Report 7694274-1 (Version None)
Quarter: 2011Q3

REPORT INFORMATION
  Report Type: 
  Country: None (occurrence: None)
  Receive Date: 20110819
  Receipt Date: 20110810
  Transmission Date: 20111222
  Serious: Yes (Hospitalization)
  Sender: FDA-Public Use
  Company Number: FR-VIIV HEALTHCARE LIMITED-B0738611A

PATIENT
  Age: 68 Year
  Sex: Male

DRUGS (3)
  1. MARAVIROC [Suspect]
     Indication: HIV INFECTION
     Route: 065
     Dates: start: 20110404, end: 20110405
  2. TENOFOVIR DISOPROXIL FUMARATE [Concomitant]
     Indication: HIV INFECTION
     Route: 065
  3. EMTRICITABINE [Concomitant]
     Indication: HIV INFECTION
     Route: 065

REACTIONS (4)
  - DRUG RASH WITH EOSINOPHILIA AND SYSTEMIC SYMPTOMS [None]
  - SUFFOCATION FEELING [None]
  - FACE OEDEMA [None]
  - DOCUMENTED HYPERSENSITIVITY TO ADMINISTERED DRUG [None]
